FAERS Safety Report 21921573 (Version 1)
Quarter: 2023Q1

REPORT INFORMATION
  Report Type: Spontaneous
  Country: None (occurrence: US)
  Receive Date: 20230127
  Receipt Date: 20230127
  Transmission Date: 20230418
  Serious: Yes (Other)
  Sender: FDA-Public Use
  Company Number: US-Breckenridge Pharmaceutical, Inc.-2137198

PATIENT
  Age: 54 Year
  Sex: Female
  Weight: 56.818 kg

DRUGS (4)
  1. ALPRAZOLAM [Suspect]
     Active Substance: ALPRAZOLAM
     Indication: Anxiety
     Route: 048
  2. OMEPRAZOLE [Concomitant]
     Active Substance: OMEPRAZOLE
  3. ATENOLOL [Concomitant]
     Active Substance: ATENOLOL
  4. TYLENOL [Concomitant]
     Active Substance: ACETAMINOPHEN

REACTIONS (5)
  - Oesophageal pain [Unknown]
  - Pulmonary pain [Unknown]
  - Dysphagia [Unknown]
  - Dyspepsia [Unknown]
  - Tongue discomfort [Unknown]
